FAERS Safety Report 10264738 (Version 1)
Quarter: 2014Q2

REPORT INFORMATION
  Report Type: Report from Study
  Country: US (occurrence: US)
  Receive Date: 20140627
  Receipt Date: 20140627
  Transmission Date: 20141212
  Serious: Yes (Hospitalization)
  Sender: FDA-Public Use
  Company Number: US-PURDUE-USA-2014-0115117

PATIENT
  Age: 48 Year
  Sex: Male

DRUGS (3)
  1. MORPHINE SULFATE CR TABLET [Suspect]
     Indication: NEURITIS
     Dosage: UNK
     Route: 048
     Dates: start: 201202
  2. MORPHINE SULFATE CR TABLET [Suspect]
     Indication: INTERVERTEBRAL DISC DISPLACEMENT
  3. MORPHINE SULFATE CR TABLET [Suspect]
     Indication: BACK PAIN

REACTIONS (2)
  - Spinal fusion surgery [Unknown]
  - Inadequate analgesia [Unknown]
